FAERS Safety Report 24737715 (Version 1)
Quarter: 2024Q4

REPORT INFORMATION
  Report Type: Spontaneous
  Country: US (occurrence: US)
  Receive Date: 20241216
  Receipt Date: 20241216
  Transmission Date: 20250115
  Serious: Yes (Other)
  Sender: MYLAN
  Company Number: US-MYLANLABS-2024M1109976

PATIENT
  Age: 73 Year
  Sex: Male
  Weight: 72.57 kg

DRUGS (1)
  1. WIXELA INHUB [Suspect]
     Active Substance: FLUTICASONE PROPIONATE\SALMETEROL XINAFOATE
     Indication: Chronic obstructive pulmonary disease
     Dosage: 250/50 MICROGRAM, BID (1 IN MORNING, 1 AT NIGHT)
     Route: 055
     Dates: start: 2018

REACTIONS (3)
  - Choking [Unknown]
  - Dyspnoea [Unknown]
  - Device delivery system issue [Unknown]

NARRATIVE: CASE EVENT DATE: 20241124
